FAERS Safety Report 6293755-5 (Version None)
Quarter: 2009Q3

REPORT INFORMATION
  Report Type: 
  Country: None (occurrence: None)
  Receive Date: 20090729
  Receipt Date: 20090715
  Transmission Date: 20100115
  Serious: No
  Sender: FDA-Public Use
  Company Number: 2009-197160-NL

PATIENT
  Age: 25 Year
  Sex: Female

DRUGS (2)
  1. ETONOGESTREL (BATCH #: 101841/159865) [Suspect]
     Dosage: DF
     Dates: start: 20070509, end: 20090520
  2. PARACETAMOL [Concomitant]

REACTIONS (5)
  - ABORTION SPONTANEOUS [None]
  - DRUG EXPOSURE DURING PREGNANCY [None]
  - METRORRHAGIA [None]
  - PREGNANCY WITH CONTRACEPTIVE DEVICE [None]
  - TWIN PREGNANCY [None]
